FAERS Safety Report 10934358 (Version 2)
Quarter: 2015Q2

REPORT INFORMATION
  Report Type: Report from Study
  Country: BR (occurrence: BR)
  Receive Date: 20150320
  Receipt Date: 20150619
  Transmission Date: 20150821
  Serious: Yes (Life-Threatening, Other)
  Sender: FDA-Public Use
  Company Number: PHHY2015BR032800

PATIENT
  Sex: Female
  Weight: 78 kg

DRUGS (2)
  1. DIOVAN [Suspect]
     Active Substance: VALSARTAN
     Indication: HYPERTENSION
  2. DIOVAN [Suspect]
     Active Substance: VALSARTAN
     Indication: CARDIAC DISORDER
     Dosage: UNK
     Route: 065

REACTIONS (8)
  - Chest injury [Recovered/Resolved]
  - Weight decreased [Unknown]
  - Visual impairment [Unknown]
  - Blindness unilateral [Unknown]
  - Feeling abnormal [Recovered/Resolved]
  - Fall [Recovered/Resolved]
  - Visual acuity reduced [Unknown]
  - Hypokinesia [Unknown]
